FAERS Safety Report 4728807-1 (Version None)
Quarter: 2005Q3

REPORT INFORMATION
  Report Type: 
  Country: None (occurrence: None)
  Receive Date: 20050721
  Receipt Date: 20050527
  Transmission Date: 20060218
  Serious: No
  Sender: FDA-Public Use
  Company Number: 2005SP001068

PATIENT
  Age: 68 Year
  Sex: Male
  Weight: 88.4514 kg

DRUGS (11)
  1. LUNESTA [Suspect]
     Indication: INSOMNIA
     Dosage: 3 MG HS ORAL, 2MG HS ORAL, 1 MG HS ORAL
     Route: 048
     Dates: start: 20050101, end: 20050101
  2. LUNESTA [Suspect]
     Indication: INSOMNIA
     Dosage: 3 MG HS ORAL, 2MG HS ORAL, 1 MG HS ORAL
     Route: 048
     Dates: start: 20050506, end: 20050501
  3. LUNESTA [Suspect]
     Indication: INSOMNIA
     Dosage: 3 MG HS ORAL, 2MG HS ORAL, 1 MG HS ORAL
     Route: 048
     Dates: start: 20050101
  4. PLAVIX [Concomitant]
  5. ATORVASTATIN CALCIUM [Concomitant]
  6. ZETIA [Concomitant]
  7. ALLOPURINOL [Concomitant]
  8. ASA TABS [Concomitant]
  9. MOBIC [Concomitant]
  10. SERZONE [Concomitant]
  11. AMBIEN [Concomitant]

REACTIONS (2)
  - FATIGUE [None]
  - SOMNOLENCE [None]
